FAERS Safety Report 9171364 (Version 1)
Quarter: 2013Q1

REPORT INFORMATION
  Report Type: Spontaneous
  Country: US (occurrence: None)
  Receive Date: 20130318
  Receipt Date: 20130318
  Transmission Date: 20140127
  Serious: Yes (Life-Threatening)
  Sender: FDA-Public Use
  Company Number: None

PATIENT
  Age: 88 Year
  Sex: Male
  Weight: 70.9 kg

DRUGS (1)
  1. CLINDAMYCIN [Suspect]
     Indication: LOCALISED INFECTION
     Route: 048
     Dates: start: 20130118, end: 20130119

REACTIONS (3)
  - Rash [None]
  - Skin exfoliation [None]
  - Stevens-Johnson syndrome [None]
